FAERS Safety Report 5247826-2 (Version None)
Quarter: 2007Q1

REPORT INFORMATION
  Report Type: 
  Country: None (occurrence: None)
  Receive Date: 20070227
  Receipt Date: 20070227
  Transmission Date: 20070707
  Serious: Yes (Other)
  Sender: FDA-Public Use
  Company Number: None

PATIENT
  Age: 7 Year
  Sex: Male
  Weight: 32.659 kg

DRUGS (2)
  1. DURATAN FORTE SUSPENSION [Suspect]
     Indication: RESPIRATORY DISORDER
     Dosage: PO
     Route: 048
     Dates: start: 20061001
  2. TUSSI-12D  WALLACE [Suspect]
     Indication: RESPIRATORY DISORDER
     Dosage: ONE TABLET  TWICE A DAY PO
     Route: 048
     Dates: start: 20070201

REACTIONS (3)
  - DRUG HYPERSENSITIVITY [None]
  - PRURITUS GENERALISED [None]
  - PSYCHOMOTOR HYPERACTIVITY [None]
